FAERS Safety Report 23123743 (Version 1)
Quarter: 2023Q4

REPORT INFORMATION
  Report Type: Spontaneous
  Country: GB (occurrence: GB)
  Receive Date: 20231030
  Receipt Date: 20231030
  Transmission Date: 20240109
  Serious: Yes (Other)
  Sender: FDA-Public Use
  Company Number: GB-GLAXOSMITHKLINE-GB2023EME147685

PATIENT

DRUGS (1)
  1. DOSTARLIMAB [Suspect]
     Active Substance: DOSTARLIMAB
     Indication: Endometrial cancer recurrent
     Dosage: UNK

REACTIONS (4)
  - Necrosis [Unknown]
  - Malignant neoplasm progression [Recovering/Resolving]
  - Pyrexia [Unknown]
  - Malaise [Unknown]
